FAERS Safety Report 6926543-4 (Version None)
Quarter: 2010Q3

REPORT INFORMATION
  Report Type: 
  Country: None (occurrence: None)
  Receive Date: 20100816
  Receipt Date: 20100517
  Transmission Date: 20110219
  Serious: No
  Sender: FDA-Public Use
  Company Number: US-ABBOTT-10P-163-0645822-00

PATIENT
  Sex: Female
  Weight: 82.628 kg

DRUGS (5)
  1. SIMCOR [Suspect]
     Indication: CORONARY ARTERY DISEASE
     Dates: start: 20100410
  2. EFFIENT [Concomitant]
     Indication: ANTICOAGULANT THERAPY
  3. LEVOTHYROXINE [Concomitant]
     Indication: HYPOTHYROIDISM
  4. ASPIRIN [Concomitant]
     Indication: PRODUCT USED FOR UNKNOWN INDICATION
  5. PEPCID [Concomitant]
     Indication: PRODUCT USED FOR UNKNOWN INDICATION

REACTIONS (1)
  - FLUSHING [None]
